FAERS Safety Report 7014397 (Version 3)
Quarter: 2015Q1

REPORT INFORMATION
  Report Type: Spontaneous
  Country: US (occurrence: None)
  Receive Date: 20090528
  Receipt Date: 20150202
  Transmission Date: 20150721
  Serious: Yes (Hospitalization)
  Sender: FDA-Public Use
  Company Number: TPA2009A01151

PATIENT
  Age: 79 Year
  Sex: Male
  Weight: 72.58 kg

DRUGS (3)
  1. PREVPAC [Suspect]
     Active Substance: AMOXICILLIN\CLARITHROMYCIN\LANSOPRAZOLE
     Indication: HELICOBACTER INFECTION
     Dosage: 0.5 CARD, 2 IN 1 SEC, PER ORAL
     Route: 048
     Dates: start: 20090429, end: 20090501
  2. PREVPAC [Suspect]
     Active Substance: AMOXICILLIN\CLARITHROMYCIN\LANSOPRAZOLE
     Dosage: 0.5 CARD, 2 IN 1 SEC, PER ORAL
     Route: 048
     Dates: start: 20090429, end: 20090501
  3. PREVPAC [Suspect]
     Active Substance: AMOXICILLIN\CLARITHROMYCIN\LANSOPRAZOLE
     Indication: IRON DEFICIENCY
     Dosage: 0.5 CARD, 2 IN 1 SEC, PER ORAL
     Route: 048
     Dates: start: 20090429, end: 20090501

REACTIONS (8)
  - Night sweats [None]
  - Eating disorder [None]
  - Aphasia [None]
  - Hypophagia [None]
  - Hyperhidrosis [None]
  - Asthenia [None]
  - Dysstasia [None]
  - Malaise [None]

NARRATIVE: CASE EVENT DATE: 20090430
